FAERS Safety Report 9160594 (Version 1)
Quarter: 2013Q1

REPORT INFORMATION
  Report Type: Spontaneous
  Country: US (occurrence: US)
  Receive Date: 20130313
  Receipt Date: 20130313
  Transmission Date: 20140127
  Serious: No
  Sender: FDA-Public Use
  Company Number: US-ABBOTT-12P-163-1009698-00

PATIENT
  Age: 24 Year
  Sex: Male

DRUGS (1)
  1. DEPAKOTE [Suspect]
     Indication: DEPRESSION
     Dates: start: 2009, end: 201211

REACTIONS (2)
  - Gastrointestinal infection [Unknown]
  - Off label use [Unknown]
